FAERS Safety Report 5631996-8 (Version None)
Quarter: 2008Q1

REPORT INFORMATION
  Report Type: 
  Country: None (occurrence: None)
  Receive Date: 20080213
  Receipt Date: 20080130
  Transmission Date: 20080703
  Serious: Yes (Death, Hospitalization)
  Sender: FDA-Public Use
  Company Number: PAR_02100_2008

PATIENT
  Age: 33 Year
  Sex: Female

DRUGS (1)
  1. IBUPROFEN [Suspect]
     Indication: COMPLETED SUICIDE
     Dosage: 36 G 1X NOT THE PRESCRIBED AMOUNT

REACTIONS (22)
  - ALANINE AMINOTRANSFERASE INCREASED [None]
  - ASPARTATE AMINOTRANSFERASE INCREASED [None]
  - BLOOD CREATININE INCREASED [None]
  - BLOOD UREA INCREASED [None]
  - BRAIN OEDEMA [None]
  - COMA [None]
  - COMPLETED SUICIDE [None]
  - ELECTROLYTE IMBALANCE [None]
  - HEADACHE [None]
  - HYPERGLYCAEMIA [None]
  - HYPERNATRAEMIA [None]
  - HYPEROSMOLAR STATE [None]
  - HYPOTENSION [None]
  - METABOLIC ACIDOSIS [None]
  - MYDRIASIS [None]
  - NAUSEA [None]
  - OVERDOSE [None]
  - RESPIRATORY FAILURE [None]
  - SHOCK [None]
  - SOMNOLENCE [None]
  - SUICIDAL BEHAVIOUR [None]
  - TACHYCARDIA [None]
